FAERS Safety Report 15693213 (Version 3)
Quarter: 2019Q1

REPORT INFORMATION
  Report Type: Report from Study
  Country: US (occurrence: US)
  Receive Date: 20181206
  Receipt Date: 20190227
  Transmission Date: 20190417
  Serious: Yes (Other)
  Sender: FDA-Public Use
  Company Number: US-AMGEN INC.-USASP2018163989

PATIENT
  Age: 79 Year
  Sex: Male

DRUGS (3)
  1. AIMOVIG [Suspect]
     Active Substance: ERENUMAB-AOOE
     Dosage: 140 MG, UNK
     Route: 065
     Dates: start: 201807, end: 20181003
  2. RITUXAN [Concomitant]
     Active Substance: RITUXIMAB
     Dosage: UNK UNK, QWK
     Route: 042
  3. AIMOVIG [Suspect]
     Active Substance: ERENUMAB-AOOE
     Indication: MIGRAINE PROPHYLAXIS
     Dosage: 70 MG, UNK
     Route: 065
     Dates: start: 201805, end: 201806

REACTIONS (4)
  - Pain in extremity [Not Recovered/Not Resolved]
  - Balance disorder [Not Recovered/Not Resolved]
  - Chronic kidney disease [Unknown]
  - Insomnia [Unknown]

NARRATIVE: CASE EVENT DATE: 2018
